FAERS Safety Report 18212960 (Version 1)
Quarter: 2020Q3

REPORT INFORMATION
  Report Type: Spontaneous
  Country: FR (occurrence: FR)
  Receive Date: 20200831
  Receipt Date: 20200831
  Transmission Date: 20201103
  Serious: Yes (Death, Hospitalization, Other)
  Sender: FDA-Public Use
  Company Number: FR-MYLANLABS-2020M1075188

PATIENT
  Age: 90 Year
  Sex: Female
  Weight: 82.5 kg

DRUGS (1)
  1. FONDAPARINUX [Suspect]
     Active Substance: FONDAPARINUX
     Indication: PHLEBITIS
     Dosage: 7.5 MILLIGRAM
     Route: 058

REACTIONS (2)
  - Shock haemorrhagic [Fatal]
  - Off label use [Unknown]

NARRATIVE: CASE EVENT DATE: 20200628
